FAERS Safety Report 6402266-5 (Version None)
Quarter: 2009Q4

REPORT INFORMATION
  Report Type: 
  Country: None (occurrence: None)
  Receive Date: 20091015
  Receipt Date: 20091002
  Transmission Date: 20100525
  Serious: Yes (Other)
  Sender: FDA-Public Use
  Company Number: PHEH2008US05593

PATIENT

DRUGS (1)
  1. ZOMETA [Suspect]
     Indication: MULTIPLE MYELOMA
     Dosage: MONTHLY

REACTIONS (20)
  - ANHEDONIA [None]
  - ANXIETY [None]
  - ARTHRITIS [None]
  - ASTHMA [None]
  - BONE DISORDER [None]
  - DENTAL CARIES [None]
  - DYSPNOEA [None]
  - EDENTULOUS [None]
  - GINGIVAL BLEEDING [None]
  - INJURY [None]
  - LUNG DISORDER [None]
  - NECK INJURY [None]
  - OEDEMA MOUTH [None]
  - OSTEONECROSIS [None]
  - PAIN [None]
  - PAIN IN JAW [None]
  - SURGERY [None]
  - TINNITUS [None]
  - TOOTH EXTRACTION [None]
  - ULCER [None]
